FAERS Safety Report 14833162 (Version 2)
Quarter: 2018Q2

REPORT INFORMATION
  Report Type: Report from Study
  Country: IT (occurrence: IT)
  Receive Date: 20180501
  Receipt Date: 20180622
  Transmission Date: 20180711
  Serious: Yes (Death, Hospitalization)
  Sender: FDA-Public Use
  Company Number: IT-EISAI MEDICAL RESEARCH-EC-2014-000106

PATIENT
  Age: 72 Year
  Sex: Female
  Weight: 91 kg

DRUGS (22)
  1. LENVATINIB [Suspect]
     Active Substance: LENVATINIB
     Route: 048
     Dates: start: 20130408, end: 20180424
  2. PAROXETINE. [Concomitant]
     Active Substance: PAROXETINE
  3. ASENEPINA [Concomitant]
  4. EUTIROX [Concomitant]
     Active Substance: LEVOTHYROXINE SODIUM
  5. MULTIVITAMIN SUPPLEMENT [Concomitant]
  6. CALCIUM [Concomitant]
     Active Substance: CALCIUM
  7. KANRENOL [Concomitant]
     Active Substance: CANRENOATE POTASSIUM
  8. VENLAFAXINA [Concomitant]
     Active Substance: VENLAFAXINE HYDROCHLORIDE
  9. OMEPRAZOLE. [Concomitant]
     Active Substance: OMEPRAZOLE
  10. WELLBUTRIN [Concomitant]
     Active Substance: BUPROPION HYDROCHLORIDE
  11. LENVATINIB [Suspect]
     Active Substance: LENVATINIB
     Route: 048
     Dates: start: 20120801, end: 20120807
  12. LENVATINIB [Suspect]
     Active Substance: LENVATINIB
     Route: 048
     Dates: start: 20120813, end: 20130327
  13. METFORMINA [Concomitant]
     Active Substance: METFORMIN HYDROCHLORIDE
  14. CARDURA [Concomitant]
     Active Substance: DOXAZOSIN MESYLATE
  15. LERCADIP [Concomitant]
     Active Substance: LERCANIDIPINE HYDROCHLORIDE
  16. FORZAAR [Concomitant]
  17. LENVATINIB [Suspect]
     Active Substance: LENVATINIB
     Indication: THYROID CANCER
     Route: 048
     Dates: start: 20120228, end: 20120716
  18. CARDIOASPIRINE [Concomitant]
     Active Substance: ASPIRIN
  19. ZOFRAN [Concomitant]
     Active Substance: ONDANSETRON HYDROCHLORIDE
  20. DILZENE [Concomitant]
     Active Substance: DILTIAZEM HYDROCHLORIDE
  21. CHOLECALCIFEROL [Concomitant]
     Active Substance: CHOLECALCIFEROL
  22. XARELTO [Concomitant]
     Active Substance: RIVAROXABAN

REACTIONS (5)
  - Cholecystitis infective [Not Recovered/Not Resolved]
  - Respiratory failure [Not Recovered/Not Resolved]
  - Atrial fibrillation [Recovered/Resolved]
  - Cardiac arrest [Fatal]
  - Hyponatraemia [Recovered/Resolved]

NARRATIVE: CASE EVENT DATE: 20140812
